FAERS Safety Report 17391002 (Version 1)
Quarter: 2020Q1

REPORT INFORMATION
  Report Type: Spontaneous
  Country: ES (occurrence: ES)
  Receive Date: 20200207
  Receipt Date: 20200207
  Transmission Date: 20200409
  Serious: Yes (Other)
  Sender: FDA-Public Use
  Company Number: ES-TEVA-2020-ES-1182403

PATIENT
  Age: 53 Year
  Sex: Male

DRUGS (3)
  1. EZETIMIBA (7432A) [Interacting]
     Active Substance: EZETIMIBE
     Indication: HYPERLIPIDAEMIA
     Dosage: 10 MG
     Route: 048
     Dates: start: 20191021
  2. BISOPROLOL (2328A) [Concomitant]
     Active Substance: BISOPROLOL
     Indication: ACUTE MYOCARDIAL INFARCTION
     Dosage: 2.5 MG
     Route: 048
     Dates: start: 20190824, end: 20191111
  3. ATORVASTATINA (7400A) [Suspect]
     Active Substance: ATORVASTATIN
     Indication: HYPERLIPIDAEMIA
     Dosage: 80 MG
     Route: 048
     Dates: start: 20190824, end: 20191111

REACTIONS (3)
  - Asthenia [Recovered/Resolved]
  - Myalgia [Recovered/Resolved]
  - Drug interaction [Unknown]

NARRATIVE: CASE EVENT DATE: 20191111
